FAERS Safety Report 14255419 (Version 2)
Quarter: 2017Q4

REPORT INFORMATION
  Report Type: Spontaneous
  Country: US (occurrence: US)
  Receive Date: 20171206
  Receipt Date: 20171228
  Transmission Date: 20180321
  Serious: Yes (Hospitalization, Other)
  Sender: FDA-Public Use
  Company Number: US-ACORDA-ACO_144570_2017

PATIENT
  Sex: Male

DRUGS (1)
  1. AMPYRA [Suspect]
     Active Substance: DALFAMPRIDINE
     Indication: PRODUCT USED FOR UNKNOWN INDICATION
     Dosage: 10 MG, BID (Q12H)
     Route: 048
     Dates: start: 20170824, end: 20171115

REACTIONS (6)
  - Delusion [Unknown]
  - Adverse reaction [Unknown]
  - Paranoia [Unknown]
  - Hallucination [Unknown]
  - Adverse event [Unknown]
  - Psychotic disorder [Unknown]
